FAERS Safety Report 10966340 (Version 14)
Quarter: 2016Q2

REPORT INFORMATION
  Report Type: Report from Study
  Country: IT (occurrence: IT)
  Receive Date: 20150330
  Receipt Date: 20160525
  Transmission Date: 20160815
  Serious: Yes (Death, Hospitalization)
  Sender: FDA-Public Use
  Company Number: IT-ROCHE-1550383

PATIENT
  Age: 81 Year
  Sex: Male
  Weight: 70 kg

DRUGS (33)
  1. OBINUTUZUMAB [Suspect]
     Active Substance: OBINUTUZUMAB
     Indication: DIFFUSE LARGE B-CELL LYMPHOMA
     Dosage: MOST RECENT DOSE PRIOR TO EVENT ONSET 250ML AT DOSE CONCENTRATION 4MG/ML ON 18/JUN/2014
     Route: 042
     Dates: start: 20140327
  2. CALCIJEX [Concomitant]
     Active Substance: CALCITRIOL
     Indication: RENAL OSTEODYSTROPHY
     Route: 065
     Dates: start: 20140311
  3. TRIMEBUTINA [Concomitant]
     Indication: ABDOMINAL PAIN
     Route: 065
     Dates: start: 20140721
  4. LANSOPRAZOLO [Concomitant]
     Active Substance: LANSOPRAZOLE
     Route: 065
     Dates: start: 20150305
  5. CLEXANE [Concomitant]
     Active Substance: ENOXAPARIN SODIUM
     Indication: PROPHYLAXIS
     Route: 065
     Dates: start: 20150305
  6. BACTRIM [Concomitant]
     Active Substance: SULFAMETHOXAZOLE\TRIMETHOPRIM
     Indication: PREMEDICATION
     Route: 065
     Dates: start: 20140417, end: 20150305
  7. VINCRISTINE [Suspect]
     Active Substance: VINCRISTINE
     Indication: DIFFUSE LARGE B-CELL LYMPHOMA
     Dosage: MOST RECENT DOSE PRIOR TO EVENT ONSET 2 MG ON 18/JUN/2014
     Route: 040
     Dates: start: 20140328
  8. CEFTRIAXONE. [Suspect]
     Active Substance: CEFTRIAXONE
     Indication: PNEUMONIA
     Dosage: 1 VIAL 1 GRAM/ML
     Route: 065
  9. LORANS [Concomitant]
     Active Substance: LORAZEPAM
     Indication: DEPRESSION
     Route: 065
     Dates: start: 20150305
  10. COTAREG [Concomitant]
     Active Substance: HYDROCHLOROTHIAZIDE\VALSARTAN
     Dosage: ANTIHYPERTENSIVE
     Route: 065
  11. DIFLUCAN (FLUCONAZOL) [Concomitant]
     Indication: STOMATITIS
     Route: 065
     Dates: start: 20140502, end: 201405
  12. ALLOPURINOL. [Concomitant]
     Active Substance: ALLOPURINOL
     Indication: BLOOD URIC ACID
     Route: 065
     Dates: start: 2009, end: 20150305
  13. LERCANIDIPINA [Concomitant]
     Active Substance: LERCANIDIPINE
     Indication: HYPERTENSION
     Route: 065
     Dates: start: 2009
  14. ACICLOVIR [Concomitant]
     Active Substance: ACYCLOVIR
     Route: 065
     Dates: start: 20140627
  15. ACICLOVIR [Concomitant]
     Active Substance: ACYCLOVIR
     Route: 065
     Dates: start: 20140417, end: 20150305
  16. TROMETAMINA [Concomitant]
     Route: 065
     Dates: start: 20140721
  17. NATEMILLE [Concomitant]
     Indication: BLOOD CALCIUM DECREASED
     Dosage: LOW CALCIUM AND D VITAMINE
     Route: 065
     Dates: start: 20140812, end: 20150305
  18. DEBRIDAT [Concomitant]
     Active Substance: TRIMEBUTINE MALEATE
     Indication: ABDOMINAL PAIN
     Route: 065
     Dates: start: 20140721
  19. BROMAZEPAN [Concomitant]
     Dosage: ANTI -ANXIETY
     Route: 065
     Dates: start: 20140721
  20. LASIX [Concomitant]
     Active Substance: FUROSEMIDE
     Dosage: DIURETIC
     Route: 065
     Dates: start: 20140726
  21. VALSARTAN. [Concomitant]
     Active Substance: VALSARTAN
     Indication: HYPERTENSION
     Route: 065
     Dates: start: 2009
  22. SIMVASTATINA [Concomitant]
     Active Substance: SIMVASTATIN
     Indication: BLOOD CHOLESTEROL
     Route: 065
     Dates: start: 2009
  23. CIPRALEX [Concomitant]
     Active Substance: ESCITALOPRAM OXALATE
     Indication: DEPRESSION
     Route: 065
     Dates: start: 20150305
  24. DOXORUBICIN [Suspect]
     Active Substance: DOXORUBICIN
     Indication: DIFFUSE LARGE B-CELL LYMPHOMA
     Dosage: MOST RECENT DOSE PRIOR TO EVENT ONSET 50MG ON 18/JUN/2014
     Route: 042
     Dates: start: 20140328
  25. SOLIAN [Concomitant]
     Active Substance: AMISULPRIDE
     Indication: DEPRESSION
     Route: 065
     Dates: start: 20150305
  26. DUSPATAL [Concomitant]
     Active Substance: MEBEVERINE
     Indication: DIARRHOEA
     Route: 065
     Dates: start: 20140721
  27. CYCLOPHOSPHAMIDE. [Suspect]
     Active Substance: CYCLOPHOSPHAMIDE
     Indication: DIFFUSE LARGE B-CELL LYMPHOMA
     Dosage: MOST RECENT DOSE PRIOR TO EVENT ONSET 1433MG ON 18/JUN/2014
     Route: 042
     Dates: start: 20140328
  28. PREDNISONE. [Suspect]
     Active Substance: PREDNISONE
     Indication: DIFFUSE LARGE B-CELL LYMPHOMA
     Dosage: MOST RECENT DOSE PRIOR TO EVENT ONSET 25 MG ON 24/JUN/2014
     Route: 048
     Dates: start: 20140328
  29. ASACOL [Concomitant]
     Active Substance: MESALAMINE
     Indication: ABDOMINAL PAIN
     Route: 065
     Dates: start: 20140721
  30. INEGY [Concomitant]
     Active Substance: EZETIMIBE\SIMVASTATIN
  31. NORMIX [Concomitant]
     Active Substance: RIFAXIMIN
     Indication: DIARRHOEA
     Route: 065
     Dates: start: 20140808, end: 20150305
  32. PENTACOL [Concomitant]
     Active Substance: MESALAMINE
     Indication: DIARRHOEA
     Route: 065
     Dates: start: 20140808, end: 20150305
  33. NATEMILLE [Concomitant]
     Indication: VITAMIN D DECREASED

REACTIONS (2)
  - Dyspnoea [Fatal]
  - Pneumonia [Recovered/Resolved]

NARRATIVE: CASE EVENT DATE: 20150305
